FAERS Safety Report 18453301 (Version 1)
Quarter: 2020Q4

REPORT INFORMATION
  Report Type: Report from Study
  Country: DE (occurrence: DE)
  Receive Date: 20201102
  Receipt Date: 20201102
  Transmission Date: 20210114
  Serious: Yes (Hospitalization, Other)
  Sender: FDA-Public Use
  Company Number: DE-TAKEDA-2020TUS044471

PATIENT

DRUGS (12)
  1. TEDUGLUTIDE [Suspect]
     Active Substance: TEDUGLUTIDE
     Indication: SHORT-BOWEL SYNDROME
     Dosage: 0.9 MILLIGRAM
     Route: 065
     Dates: start: 20200826
  2. TEDUGLUTIDE [Suspect]
     Active Substance: TEDUGLUTIDE
     Indication: SHORT-BOWEL SYNDROME
     Dosage: 0.9 MILLIGRAM
     Route: 065
     Dates: start: 20200826
  3. CREON [Concomitant]
     Active Substance: PANCRELIPASE AMYLASE\PANCRELIPASE LIPASE\PANCRELIPASE PROTEASE
     Dosage: 1 TEASPOON, WITH EVERY MEAL
     Route: 048
     Dates: start: 20200728, end: 20201002
  4. TEDUGLUTIDE [Suspect]
     Active Substance: TEDUGLUTIDE
     Dosage: 0.8 MILLIGRAM
     Route: 065
     Dates: start: 20201001
  5. VITADRAL [Concomitant]
     Indication: VITAMIN A DEFICIENCY
     Dosage: 15 DROPS, QD
     Route: 047
     Dates: start: 20200728
  6. TEDUGLUTIDE [Suspect]
     Active Substance: TEDUGLUTIDE
     Dosage: 0.8 MILLIGRAM
     Route: 065
     Dates: start: 20201001
  7. TEDUGLUTIDE [Suspect]
     Active Substance: TEDUGLUTIDE
     Indication: SHORT-BOWEL SYNDROME
     Dosage: 0.9 MILLIGRAM
     Route: 065
     Dates: start: 20200826
  8. FERRLECIT [FERRIC SODIUM GLUCONATE COMPLEX] [Concomitant]
     Indication: IRON DEFICIENCY ANAEMIA
     Dosage: 10 MILLIGRAM PER MILLILITRE, 1/WEEK
     Route: 042
     Dates: start: 20200825
  9. TEDUGLUTIDE [Suspect]
     Active Substance: TEDUGLUTIDE
     Indication: SHORT-BOWEL SYNDROME
     Dosage: 0.9 MILLIGRAM
     Route: 065
     Dates: start: 20200826
  10. TEDUGLUTIDE [Suspect]
     Active Substance: TEDUGLUTIDE
     Dosage: 0.8 MILLIGRAM
     Route: 065
     Dates: start: 20201001
  11. CREON [Concomitant]
     Active Substance: PANCRELIPASE AMYLASE\PANCRELIPASE LIPASE\PANCRELIPASE PROTEASE
     Indication: PANCREATIC FAILURE
     Dosage: 2 TEASPOON, WITH EVERY MEAL
     Route: 048
     Dates: start: 20201003
  12. TEDUGLUTIDE [Suspect]
     Active Substance: TEDUGLUTIDE
     Dosage: 0.8 MILLIGRAM
     Route: 065
     Dates: start: 20201001

REACTIONS (1)
  - Sepsis [Recovered/Resolved]

NARRATIVE: CASE EVENT DATE: 20200905
